FAERS Safety Report 15248070 (Version 1)
Quarter: 2018Q3

REPORT INFORMATION
  Report Type: Spontaneous
  Country: DE (occurrence: DE)
  Receive Date: 20180807
  Receipt Date: 20180807
  Transmission Date: 20181010
  Serious: Yes (Hospitalization, Other)
  Sender: FDA-Public Use
  Company Number: DE-ACTELION-A-CH2007-18752

PATIENT
  Age: 27 Year
  Sex: Female
  Weight: 55 kg

DRUGS (11)
  1. OPSUMIT [Concomitant]
     Active Substance: MACITENTAN
     Indication: SYSTEMIC LUPUS ERYTHEMATOSUS
  2. MARCUMAR [Suspect]
     Active Substance: PHENPROCOUMON
     Indication: PULMONARY ARTERIAL HYPERTENSION
     Route: 065
  3. AZATHIOPRINE. [Concomitant]
     Active Substance: AZATHIOPRINE
     Dosage: 150 MG, QD
     Route: 065
  4. TRACLEER [Suspect]
     Active Substance: BOSENTAN
     Dosage: 125 MG, BID
     Route: 048
     Dates: start: 20070310, end: 200704
  5. OPSUMIT [Concomitant]
     Active Substance: MACITENTAN
     Indication: PULMONARY ARTERIAL HYPERTENSION
     Dosage: 10 MG, QD
     Route: 048
  6. L?THYROXINE [Concomitant]
     Active Substance: LEVOTHYROXINE
  7. PREDNISONE. [Concomitant]
     Active Substance: PREDNISONE
     Dosage: 50 MG, QD
  8. TRACLEER [Suspect]
     Active Substance: BOSENTAN
     Indication: PULMONARY ARTERIAL HYPERTENSION
     Dosage: 62.5 MG, BID
     Route: 048
     Dates: start: 20070210, end: 20070309
  9. TRACLEER [Suspect]
     Active Substance: BOSENTAN
     Dosage: 62.5 MG, TID
     Route: 048
     Dates: start: 200704, end: 200710
  10. TRACLEER [Suspect]
     Active Substance: BOSENTAN
     Dosage: 31.25 MG, BID
     Route: 048
     Dates: start: 20071023, end: 20071101
  11. SILDENAFIL. [Concomitant]
     Active Substance: SILDENAFIL
     Indication: PULMONARY ARTERIAL HYPERTENSION
     Dosage: 20 MG, TID
     Route: 065

REACTIONS (23)
  - Aspartate aminotransferase increased [Recovered/Resolved]
  - Abdominal distension [Recovered/Resolved]
  - Liver function test increased [Recovered/Resolved]
  - Pulmonary arterial hypertension [Recovering/Resolving]
  - Systemic lupus erythematosus [Unknown]
  - Alanine aminotransferase increased [Recovered/Resolved]
  - Blood bilirubin increased [Recovered/Resolved]
  - Biopsy liver [Recovered/Resolved]
  - Systemic infection [Recovering/Resolving]
  - Right ventricular dysfunction [Recovering/Resolving]
  - Ocular icterus [Recovered/Resolved]
  - Nausea [Recovered/Resolved]
  - Condition aggravated [Recovering/Resolving]
  - Pleural effusion [Recovering/Resolving]
  - Pulmonary valve incompetence [Recovering/Resolving]
  - Rash [Unknown]
  - Jaundice [Recovered/Resolved]
  - N-terminal prohormone brain natriuretic peptide increased [Recovering/Resolving]
  - Ascites [Recovering/Resolving]
  - Oesophageal motility disorder [Unknown]
  - Drug-induced liver injury [Recovered/Resolved]
  - Blood pressure decreased [Recovered/Resolved]
  - Pyrexia [Recovering/Resolving]

NARRATIVE: CASE EVENT DATE: 200704
